FAERS Safety Report 6578044-3 (Version None)
Quarter: 2010Q1

REPORT INFORMATION
  Report Type: 
  Country: None (occurrence: None)
  Receive Date: 20100211
  Receipt Date: 20100129
  Transmission Date: 20100710
  Serious: Yes (Other)
  Sender: FDA-Public Use
  Company Number: US-BAYER-201011223BCC

PATIENT
  Age: 58 Year
  Sex: Male
  Weight: 91 kg

DRUGS (10)
  1. ASPIRIN [Suspect]
     Indication: ISCHAEMIC HEART DISEASE PROPHYLAXIS
     Dosage: TOTAL DAILY DOSE: 325 MG  UNIT DOSE: 325 MG
     Route: 048
     Dates: start: 19910331, end: 19990101
  2. ASPIRIN [Suspect]
     Indication: ISCHAEMIC HEART DISEASE PROPHYLAXIS
     Dosage: TOTAL DAILY DOSE: 325 MG  UNIT DOSE: 325 MG
     Route: 048
     Dates: end: 19990101
  3. ATENOLOL [Concomitant]
     Route: 065
  4. LIPITOR [Concomitant]
     Route: 065
  5. BENICAR HCT [Concomitant]
     Route: 065
  6. ASPIRIN [Concomitant]
     Indication: ISCHAEMIC HEART DISEASE PROPHYLAXIS
     Route: 065
  7. CENTRUM REGULAR [Concomitant]
     Route: 065
  8. CENTRUM SILVER [Concomitant]
     Route: 065
  9. NATURES BOUNTY B COMPLEX [Concomitant]
     Route: 065
  10. SUNDOWN B COMPLEX [Concomitant]
     Route: 065

REACTIONS (2)
  - ABDOMINAL DISCOMFORT [None]
  - PEPTIC ULCER [None]
